FAERS Safety Report 12230854 (Version 1)
Quarter: 2016Q2

REPORT INFORMATION
  Report Type: Report from Study
  Country: BR (occurrence: BR)
  Receive Date: 20160401
  Receipt Date: 20160401
  Transmission Date: 20160815
  Serious: Yes (Death, Other)
  Sender: FDA-Public Use
  Company Number: PHHY2016BR043005

PATIENT
  Sex: Male
  Weight: 100 kg

DRUGS (1)
  1. EXELON PATCH [Suspect]
     Active Substance: RIVASTIGMINE
     Indication: DEMENTIA
     Dosage: PATCH 5 (CM2), QOD
     Route: 062

REACTIONS (4)
  - Infection [Fatal]
  - Brain death [Unknown]
  - Lower limb fracture [Unknown]
  - Inappropriate schedule of drug administration [Unknown]
